FAERS Safety Report 10564306 (Version 1)
Quarter: 2014Q4

REPORT INFORMATION
  Report Type: Report from Study
  Country: US (occurrence: US)
  Receive Date: 20141104
  Receipt Date: 20141104
  Transmission Date: 20150529
  Serious: Yes (Other)
  Sender: FDA-Public Use
  Company Number: US-ABBVIE-14K-163-1301458-00

PATIENT
  Sex: Female
  Weight: 76.73 kg

DRUGS (2)
  1. HUMIRA [Suspect]
     Active Substance: ADALIMUMAB
     Indication: RHEUMATOID ARTHRITIS
     Route: 065
     Dates: end: 20140109
  2. UNKNOWN HYPERTENSION MEDICATIONS [Concomitant]
     Indication: HYPERTENSION

REACTIONS (9)
  - Blindness unilateral [Not Recovered/Not Resolved]
  - Renal failure [Not Recovered/Not Resolved]
  - Finger deformity [Not Recovered/Not Resolved]
  - Eye disorder [Unknown]
  - Visual acuity reduced [Not Recovered/Not Resolved]
  - Hypertension [Unknown]
  - Pain in extremity [Not Recovered/Not Resolved]
  - Diabetes mellitus [Not Recovered/Not Resolved]
  - Rheumatoid arthritis [Not Recovered/Not Resolved]

NARRATIVE: CASE EVENT DATE: 2011
